FAERS Safety Report 5055391-8 (Version None)
Quarter: 2006Q3

REPORT INFORMATION
  Report Type: 
  Country: None (occurrence: None)
  Receive Date: 20060719
  Receipt Date: 20060413
  Transmission Date: 20061208
  Serious: Yes (Hospitalization)
  Sender: FDA-Public Use
  Company Number: US-BOEHRINGER INGELHEIM PHARMACEUTICALS, INC.-2006-BP-04223BP

PATIENT
  Age: 51 Year
  Sex: Female

DRUGS (7)
  1. AGGRENOX [Suspect]
     Indication: TRANSIENT ISCHAEMIC ATTACK
     Route: 048
     Dates: start: 20051001, end: 20060330
  2. AGGRENOX [Suspect]
  3. COZAAR [Concomitant]
  4. TOPROL-XL [Concomitant]
  5. FORTAMET [Concomitant]
  6. ACTOS [Concomitant]
  7. GLIMEPIRIDE [Concomitant]

REACTIONS (2)
  - RECTAL HAEMORRHAGE [None]
  - VAGINAL HAEMORRHAGE [None]
